FAERS Safety Report 20138179 (Version 6)
Quarter: 2022Q2

REPORT INFORMATION
  Report Type: Report from Study
  Country: US (occurrence: US)
  Receive Date: 20211202
  Receipt Date: 20220624
  Transmission Date: 20220721
  Serious: Yes (Hospitalization, Other)
  Sender: FDA-Public Use
  Company Number: US-ABBVIE-21K-163-4181138-00

PATIENT
  Sex: Female
  Weight: 95.340 kg

DRUGS (14)
  1. HUMIRA [Suspect]
     Active Substance: ADALIMUMAB
     Indication: Rheumatoid arthritis
     Dosage: CITRATE FREE
     Route: 058
     Dates: start: 20210819, end: 20211031
  2. HUMIRA [Suspect]
     Active Substance: ADALIMUMAB
     Dosage: CITRATE FREE
     Route: 058
     Dates: start: 202110, end: 202111
  3. HUMIRA [Suspect]
     Active Substance: ADALIMUMAB
     Dosage: CITRATE FREE
     Route: 058
     Dates: start: 2021, end: 20220111
  4. METHOTREXATE [Concomitant]
     Active Substance: METHOTREXATE
     Indication: Rheumatoid arthritis
     Route: 048
     Dates: start: 20211025, end: 20220111
  5. PFIZER-BIONTECH COVID-19 VACCINE [Concomitant]
     Active Substance: TOZINAMERAN
     Indication: COVID-19 immunisation
     Route: 030
     Dates: start: 20210301, end: 20210301
  6. PFIZER-BIONTECH COVID-19 VACCINE [Concomitant]
     Active Substance: TOZINAMERAN
     Route: 030
     Dates: start: 20210320, end: 20210320
  7. PFIZER-BIONTECH COVID-19 VACCINE [Concomitant]
     Active Substance: TOZINAMERAN
     Route: 030
     Dates: start: 20210907, end: 20210907
  8. FOLIC ACID [Concomitant]
     Active Substance: FOLIC ACID
     Indication: Product used for unknown indication
     Route: 048
     Dates: start: 20210621, end: 20220111
  9. ELAVIL [Concomitant]
     Active Substance: AMITRIPTYLINE HYDROCHLORIDE
     Indication: Product used for unknown indication
     Route: 048
     Dates: start: 20210918, end: 20220303
  10. ARIMIDEX [Concomitant]
     Active Substance: ANASTROZOLE
     Indication: Product used for unknown indication
     Route: 048
     Dates: start: 20210121
  11. PHOSLO [Concomitant]
     Active Substance: CALCIUM ACETATE
     Indication: Product used for unknown indication
     Route: 048
  12. OMNICEF [Concomitant]
     Active Substance: CEFDINIR
     Indication: Product used for unknown indication
     Route: 048
     Dates: start: 20211107, end: 20211112
  13. DOXYCYCLINE [Concomitant]
     Active Substance: DOXYCYCLINE
     Indication: Product used for unknown indication
     Route: 048
     Dates: start: 20211107, end: 20211110
  14. FLAGYL [Concomitant]
     Active Substance: METRONIDAZOLE\METRONIDAZOLE HYDROCHLORIDE
     Indication: Product used for unknown indication
     Route: 048
     Dates: start: 20211107, end: 20211110

REACTIONS (21)
  - Systemic inflammatory response syndrome [Recovered/Resolved]
  - Nodule [Recovered/Resolved]
  - Cellulitis [Recovered/Resolved]
  - Vaginal cellulitis [Recovered/Resolved]
  - Staphylococcal infection [Recovered/Resolved]
  - Sepsis [Recovered/Resolved]
  - Hepatocellular carcinoma [Unknown]
  - Staphylococcal infection [Recovered/Resolved]
  - Oral mucosal blistering [Recovered/Resolved]
  - Oedema genital [Unknown]
  - Chills [Unknown]
  - Ocular hyperaemia [Recovered/Resolved]
  - Axillary mass [Not Recovered/Not Resolved]
  - Cyst [Recovered/Resolved]
  - Leukocytosis [Unknown]
  - Subcutaneous abscess [Recovered/Resolved]
  - Oral pain [Not Recovered/Not Resolved]
  - Abscess limb [Unknown]
  - Diverticulitis [Recovered/Resolved]
  - Tachycardia [Unknown]
  - Diverticulitis [Unknown]

NARRATIVE: CASE EVENT DATE: 20210101
